FAERS Safety Report 17987929 (Version 1)
Quarter: 2020Q3

REPORT INFORMATION
  Report Type: Spontaneous
  Country: US (occurrence: US)
  Receive Date: 20200706
  Receipt Date: 20200706
  Transmission Date: 20201103
  Serious: Yes (Death)
  Sender: FDA-Public Use
  Company Number: None

PATIENT
  Age: 60 Year
  Sex: Male
  Weight: 121 kg

DRUGS (15)
  1. FENTANYL 0.35?05MCG/KG [Concomitant]
     Dates: start: 20200705, end: 20200706
  2. ACETAMINOPHEN 650MG SUPP [Concomitant]
     Dates: start: 20200704, end: 20200706
  3. ENOXAPARIN 60MG EVERY 24 HOURS [Concomitant]
     Dates: start: 20200705, end: 20200706
  4. LEVOFLOXACIN 750MG [Concomitant]
     Active Substance: LEVOFLOXACIN
     Dates: start: 20200704, end: 20200706
  5. REMDESIVIR. [Suspect]
     Active Substance: REMDESIVIR
     Indication: COVID-19
     Route: 040
     Dates: start: 20200705, end: 20200705
  6. DEXMEDETOMIDINE DRIP [Concomitant]
     Dates: start: 20200705, end: 20200706
  7. AZITHROMYCIN 500MG IV [Concomitant]
     Active Substance: AZITHROMYCIN ANHYDROUS
     Dates: start: 20200705, end: 20200706
  8. DEXAMETHASONE 6MG IV [Concomitant]
     Dates: start: 20200705, end: 20200706
  9. D5 NS @ 125ML/HR [Concomitant]
     Dates: start: 20200705, end: 20200706
  10. PANTOPRAZOLE 40MG [Concomitant]
     Active Substance: PANTOPRAZOLE SODIUM
     Dates: start: 20200705, end: 20200706
  11. LACTOBACILLUS [Concomitant]
     Active Substance: LACTOBACILLUS ACIDOPHILUS
     Dates: start: 20200704, end: 20200706
  12. NOREPINEPHRINE 0.05?3MCG/KG/MIN [Concomitant]
     Dates: start: 20200705, end: 20200706
  13. DOCUSATE 100MG [Concomitant]
     Active Substance: DOCUSATE
     Dates: start: 20200705, end: 20200706
  14. GUAIFENESIN 400MG [Concomitant]
     Dates: start: 20200704, end: 20200706
  15. LORAZEPAM. [Concomitant]
     Active Substance: LORAZEPAM
     Dates: start: 20200704, end: 20200706

REACTIONS (1)
  - Blood creatinine increased [None]

NARRATIVE: CASE EVENT DATE: 20200706
